FAERS Safety Report 10975051 (Version 3)
Quarter: 2016Q4

REPORT INFORMATION
  Report Type: Report from Study
  Country: US (occurrence: US)
  Receive Date: 20150401
  Receipt Date: 20161229
  Transmission Date: 20170206
  Serious: Yes (Hospitalization)
  Sender: FDA-Public Use
  Company Number: US-ACTELION-A-US2015-115318

PATIENT
  Age: 78 Year
  Sex: Female

DRUGS (10)
  1. ASPIRIN. [Concomitant]
     Active Substance: ASPIRIN
     Dosage: 81 MG, UNK
     Dates: start: 201503
  2. LEVOTHYROXINE. [Concomitant]
     Active Substance: LEVOTHYROXINE
     Dosage: 25 MG, UNK
     Dates: start: 201503
  3. BYSTOLIC [Concomitant]
     Active Substance: NEBIVOLOL HYDROCHLORIDE
     Dosage: 5 MG, QD
     Dates: start: 201301
  4. STOOL SOFTENER (DOCUSATE CALCIUM) [Concomitant]
     Active Substance: DOCUSATE CALCIUM
     Dosage: 100 MG, BID
     Dates: start: 201503
  5. MIRALAX [Concomitant]
     Active Substance: POLYETHYLENE GLYCOL 3350
     Dosage: UNK
     Dates: start: 201503
  6. SPIRIVA [Concomitant]
     Active Substance: TIOTROPIUM BROMIDE MONOHYDRATE
     Dosage: 11 MCG, QD
     Dates: start: 201301
  7. LIPITOR [Concomitant]
     Active Substance: ATORVASTATIN CALCIUM
     Dosage: 80 MG, UNK
     Dates: start: 201503
  8. OPSUMIT [Suspect]
     Active Substance: MACITENTAN
     Indication: PULMONARY ARTERIAL HYPERTENSION
     Dosage: 10 MG, QD
     Route: 048
     Dates: start: 201401
  9. SODIUM BICARBONATE. [Concomitant]
     Active Substance: SODIUM BICARBONATE
     Dosage: 650 MG, BID
     Dates: start: 201503
  10. OPSUMIT [Suspect]
     Active Substance: MACITENTAN
     Indication: SYSTEMIC SCLERODERMA

REACTIONS (10)
  - Confusional state [Unknown]
  - Laceration [Recovering/Resolving]
  - Dizziness [Unknown]
  - Rectal ulcer [Unknown]
  - Localised infection [Recovering/Resolving]
  - Polyp [Unknown]
  - Diverticulum [Unknown]
  - Gastrointestinal haemorrhage [Unknown]
  - Limb injury [Unknown]
  - Dehydration [Recovering/Resolving]

NARRATIVE: CASE EVENT DATE: 2014
